FAERS Safety Report 11191158 (Version 3)
Quarter: 2015Q3

REPORT INFORMATION
  Report Type: Spontaneous
  Country: US (occurrence: US)
  Receive Date: 20150615
  Receipt Date: 20150817
  Transmission Date: 20151125
  Serious: Yes (Death, Other)
  Sender: FDA-Public Use
  Company Number: US-GLAXOSMITHKLINE-US2015GSK083775

PATIENT
  Age: 58 Year
  Sex: Male
  Weight: 122.45 kg

DRUGS (3)
  1. VOTRIENT [Suspect]
     Active Substance: PAZOPANIB HYDROCHLORIDE
     Indication: RENAL CANCER METASTATIC
     Dosage: 600 MG, QD
     Route: 048
     Dates: start: 20150511
  2. VOTRIENT [Suspect]
     Active Substance: PAZOPANIB HYDROCHLORIDE
     Indication: BRAIN NEOPLASM MALIGNANT
  3. VOTRIENT [Suspect]
     Active Substance: PAZOPANIB HYDROCHLORIDE
     Indication: COLON CANCER

REACTIONS (4)
  - Death [Fatal]
  - Nausea [Unknown]
  - Pain [Unknown]
  - Vomiting [Unknown]

NARRATIVE: CASE EVENT DATE: 20150605
